FAERS Safety Report 8509631-0 (Version None)
Quarter: 2012Q3

REPORT INFORMATION
  Report Type: 
  Country: None (occurrence: None)
  Receive Date: 20120713
  Receipt Date: 20120703
  Transmission Date: 20120928
  Serious: Yes (Other)
  Sender: FDA-Public Use
  Company Number: DK-PFIZER INC-2012160010

PATIENT
  Age: 28 Year
  Sex: Male

DRUGS (4)
  1. VENLAFAXINE HCL [Suspect]
     Indication: ANXIETY
  2. VENLAFAXINE [Suspect]
     Indication: DEPRESSION
     Dosage: UNK
     Dates: start: 20110101, end: 20120101
  3. VENLAFAXINE HCL [Suspect]
     Indication: DEPRESSION
     Dosage: UNK
  4. VENLAFAXINE [Suspect]
     Indication: ANXIETY

REACTIONS (3)
  - DEPRESSION [None]
  - ANXIETY [None]
  - BONE MARROW FAILURE [None]
